FAERS Safety Report 20715134 (Version 3)
Quarter: 2022Q2

REPORT INFORMATION
  Report Type: Report from Study
  Country: AU (occurrence: AU)
  Receive Date: 20220415
  Receipt Date: 20220517
  Transmission Date: 20220720
  Serious: Yes (Other)
  Sender: FDA-Public Use
  Company Number: AU-DECIPHERA PHARMACEUTICALS LLC-2022AU000297

PATIENT
  Age: 52 Year
  Sex: Female
  Weight: 78.3 kg

DRUGS (14)
  1. RIPRETINIB [Suspect]
     Active Substance: RIPRETINIB
     Indication: Gastrointestinal stromal tumour
     Dosage: 150 MILLIGRAM, QD
     Route: 048
     Dates: start: 20190627
  2. SORBOLENE [Concomitant]
     Indication: Rash
     Dosage: 1 DOSAGE FORM(APPLICATION), PRN
     Route: 003
     Dates: start: 20191212
  3. DAIVOBET [Concomitant]
     Active Substance: BETAMETHASONE DIPROPIONATE\CALCIPOTRIENE
     Indication: Psoriasis
     Dosage: 1 MILLIGRAM, QD
     Route: 003
     Dates: start: 20200123
  4. BETAMETHASONE DIPROPIONATE [Concomitant]
     Active Substance: BETAMETHASONE DIPROPIONATE
     Indication: Psoriasis
     Dosage: 1 MILLIGRAM, QD
     Route: 003
     Dates: start: 20200123
  5. FLUOROURACIL [Concomitant]
     Active Substance: FLUOROURACIL
     Indication: Skin lesion
     Dosage: 1 DOSAGE FORM (APPLICATION), BID
     Route: 003
     Dates: start: 20201111
  6. FLUOROURACIL [Concomitant]
     Active Substance: FLUOROURACIL
     Indication: Hyperkeratosis
  7. FLUOROURACIL [Concomitant]
     Active Substance: FLUOROURACIL
     Indication: Malignant melanoma
  8. ELOCON [Concomitant]
     Active Substance: MOMETASONE FUROATE
     Indication: Psoriasis
     Dosage: 1 DOSAGE FORM (APPLICATION), QD
     Route: 003
     Dates: start: 20210204
  9. ENSTILAR [Concomitant]
     Active Substance: BETAMETHASONE DIPROPIONATE\CALCIPOTRIENE HYDRATE
     Indication: Psoriasis
     Dosage: 60 GRAM, BID
     Route: 003
     Dates: start: 20210204
  10. METHYLPREDNISOLONE ACEPONATE [Concomitant]
     Active Substance: METHYLPREDNISOLONE ACEPONATE
     Indication: Psoriasis
     Dosage: 15 GRAM, BID
     Route: 003
     Dates: start: 20210204
  11. ALDARA [Concomitant]
     Active Substance: IMIQUIMOD
     Indication: Hyperkeratosis
     Dosage: 1.5 GRAM, QD
     Route: 003
     Dates: start: 20210126
  12. CHOLINE SALICYLATE [Concomitant]
     Active Substance: CHOLINE SALICYLATE
     Indication: Mouth ulceration
     Dosage: 1 DOSAGE FORM (APPLICATION), Q4H
     Route: 048
     Dates: start: 20210722
  13. DIPROSONE [Concomitant]
     Active Substance: BETAMETHASONE DIPROPIONATE
     Indication: Seborrhoeic keratosis
     Dosage: 1.5 OTHER, % PERCENT, PRN
     Route: 003
     Dates: start: 20200123
  14. MELOXICAM [Concomitant]
     Active Substance: MELOXICAM
     Indication: Arthralgia
     Dosage: 15 MILLIGRAM, QD
     Route: 048
     Dates: start: 20220225, end: 20220308

REACTIONS (1)
  - Bowen^s disease [Recovered/Resolved]

NARRATIVE: CASE EVENT DATE: 20220330
